FAERS Safety Report 4462619-1 (Version None)
Quarter: 2004Q3

REPORT INFORMATION
  Report Type: 
  Country: None (occurrence: None)
  Receive Date: 20040928
  Receipt Date: 20040908
  Transmission Date: 20050211
  Serious: Yes (Hospitalization)
  Sender: FDA-Public Use
  Company Number: DE-2004-031465

PATIENT
  Age: 62 Year
  Sex: Male

DRUGS (1)
  1. BETAFERON (INTERFERON BETA - 1B) INJECTION, 250UG [Suspect]
     Dosage: SUBCUTANEOUS
     Route: 058
     Dates: start: 19980101

REACTIONS (4)
  - BODY TEMPERATURE INCREASED [None]
  - HEADACHE [None]
  - PHARYNGOLARYNGEAL PAIN [None]
  - TONGUE COATED [None]
